FAERS Safety Report 9603563 (Version 2)
Quarter: 2013Q4

REPORT INFORMATION
  Report Type: Spontaneous
  Country: US (occurrence: US)
  Receive Date: 20131007
  Receipt Date: 20131115
  Transmission Date: 20140711
  Serious: No
  Sender: FDA-Public Use
  Company Number: US-PFIZER INC-2013285101

PATIENT
  Age: 67 Year
  Sex: Female
  Weight: 61.22 kg

DRUGS (2)
  1. LYRICA [Suspect]
     Indication: PAIN
     Dosage: 75 MG, 2X/DAY
     Route: 048
     Dates: start: 20130928, end: 20130928
  2. LYRICA [Suspect]
     Indication: PAIN IN EXTREMITY

REACTIONS (6)
  - Nausea [Recovered/Resolved]
  - Confusional state [Recovered/Resolved]
  - Activities of daily living impaired [Recovered/Resolved]
  - Disturbance in attention [Recovered/Resolved]
  - Coordination abnormal [Recovered/Resolved]
  - Somnolence [Recovered/Resolved]
